FAERS Safety Report 16610458 (Version 3)
Quarter: 2019Q3

REPORT INFORMATION
  Report Type: Spontaneous
  Country: SK (occurrence: SK)
  Receive Date: 20190722
  Receipt Date: 20190826
  Transmission Date: 20191004
  Serious: Yes (Hospitalization, Other)
  Sender: FDA-Public Use
  Company Number: SK-JNJFOC-20181019742

PATIENT
  Age: 30 Year
  Sex: Male

DRUGS (2)
  1. PYRAZINAMIDE. [Suspect]
     Active Substance: PYRAZINAMIDE
     Indication: PRODUCT USED FOR UNKNOWN INDICATION
     Route: 065
  2. REMICADE [Suspect]
     Active Substance: INFLIXIMAB
     Indication: COLITIS ULCERATIVE
     Route: 042
     Dates: start: 201506, end: 201510

REACTIONS (3)
  - Disseminated tuberculosis [Recovering/Resolving]
  - Meningitis tuberculous [Recovering/Resolving]
  - Liver function test increased [Unknown]

NARRATIVE: CASE EVENT DATE: 2015
